FAERS Safety Report 7149988-9 (Version None)
Quarter: 2010Q4

REPORT INFORMATION
  Report Type: 
  Country: None (occurrence: None)
  Receive Date: 20101210
  Receipt Date: 20101203
  Transmission Date: 20110411
  Serious: Yes (Death)
  Sender: FDA-Public Use
  Company Number: UA-TEVA-XM22-04-258752GER

PATIENT
  Sex: Male
  Weight: 59 kg

DRUGS (12)
  1. XM22 PEG-FILGRASTIM [Suspect]
     Indication: COLONY STIMULATING FACTOR PROPHYLAXIS
     Dosage: BLINDED XM22 6 MG OR PLACEBO
     Route: 058
     Dates: start: 20100820, end: 20100820
  2. XM22 PEG-FILGRASTIM [Suspect]
     Dosage: BLINDED XM22 6 MG OR PLACEBO
     Route: 058
     Dates: start: 20100913, end: 20100913
  3. XM22 PEG-FILGRASTIM [Suspect]
     Dosage: BLINDED XM22 6 MG OR PLACEBO
     Route: 058
     Dates: start: 20101007, end: 20101007
  4. XM22 PEG-FILGRASTIM [Suspect]
     Dosage: BLINDED XM22 6 MG OR PLACEBO
     Route: 058
     Dates: start: 20101111, end: 20101111
  5. ETOPOSIDE [Suspect]
     Indication: NON-SMALL CELL LUNG CANCER
     Route: 041
     Dates: start: 20100801, end: 20100801
  6. ETOPOSIDE [Suspect]
     Route: 041
     Dates: start: 20100901, end: 20100901
  7. ETOPOSIDE [Suspect]
     Route: 041
     Dates: start: 20101001, end: 20101001
  8. ETOPOSIDE [Suspect]
     Route: 041
     Dates: start: 20101101, end: 20101101
  9. CISPLATIN [Suspect]
     Indication: NON-SMALL CELL LUNG CANCER
     Route: 041
     Dates: start: 20100801, end: 20100801
  10. CISPLATIN [Suspect]
     Route: 041
     Dates: start: 20100901, end: 20100901
  11. CISPLATIN [Suspect]
     Route: 041
     Dates: start: 20101001, end: 20101001
  12. CISPLATIN [Suspect]
     Route: 041
     Dates: start: 20101101, end: 20101101

REACTIONS (2)
  - FEBRILE NEUTROPENIA [None]
  - TUMOUR LYSIS SYNDROME [None]
